FAERS Safety Report 17162514 (Version 1)
Quarter: 2019Q4

REPORT INFORMATION
  Report Type: Spontaneous
  Country: CA (occurrence: CA)
  Receive Date: 20191217
  Receipt Date: 20191217
  Transmission Date: 20200122
  Serious: Yes (Hospitalization, Disabling)
  Sender: FDA-Public Use
  Company Number: CA-TEVA-2019-CA-1150862

PATIENT
  Age: 16 Year
  Sex: Male
  Weight: 62 kg

DRUGS (9)
  1. FUROSEMIDE. [Concomitant]
     Active Substance: FUROSEMIDE
  2. METHOTREXATE. [Suspect]
     Active Substance: METHOTREXATE
     Indication: ACUTE LYMPHOCYTIC LEUKAEMIA
     Route: 042
  3. ONDANSETRON [Concomitant]
     Active Substance: ONDANSETRON
  4. PREGABALIN. [Concomitant]
     Active Substance: PREGABALIN
  5. CEFTAZIDIME. [Concomitant]
     Active Substance: CEFTAZIDIME
  6. LEUCOVORIN. [Concomitant]
     Active Substance: LEUCOVORIN
  7. VINCRISTINE SULFATE. [Concomitant]
     Active Substance: VINCRISTINE SULFATE
  8. CETIRIZINE [Concomitant]
     Active Substance: CETIRIZINE HYDROCHLORIDE
  9. MERCAPTOPURINE. [Concomitant]
     Active Substance: MERCAPTOPURINE

REACTIONS (3)
  - Weight decreased [Recovered/Resolved]
  - Dysphagia [Recovered/Resolved]
  - Mucosal inflammation [Recovered/Resolved]
